FAERS Safety Report 22076627 (Version 3)
Quarter: 2023Q1

REPORT INFORMATION
  Report Type: Spontaneous
  Country: GB (occurrence: GB)
  Receive Date: 20230309
  Receipt Date: 20230321
  Transmission Date: 20230418
  Serious: Yes (Other)
  Sender: FDA-Public Use
  Company Number: GB-009507513-2303GBR001437

PATIENT
  Age: 59 Year
  Sex: Male

DRUGS (4)
  1. PEMBROLIZUMAB [Suspect]
     Active Substance: PEMBROLIZUMAB
     Indication: Oesophageal squamous cell carcinoma
     Dosage: UNK
     Dates: start: 20220801
  2. CISPLATIN [Suspect]
     Active Substance: CISPLATIN
     Indication: Oesophageal squamous cell carcinoma
     Dosage: UNK
     Dates: start: 202207
  3. CAPECITABINE [Suspect]
     Active Substance: CAPECITABINE
     Indication: Oesophageal squamous cell carcinoma
     Dosage: UNK
     Dates: start: 202207
  4. CAPECITABINE [Suspect]
     Active Substance: CAPECITABINE
     Indication: Oesophageal squamous cell carcinoma

REACTIONS (21)
  - Neutropenia [Not Recovered/Not Resolved]
  - Loss of consciousness [Recovered/Resolved]
  - Nausea [Recovered/Resolved]
  - Retching [Recovered/Resolved]
  - Hiccups [Recovered/Resolved]
  - Gastritis [Recovered/Resolved]
  - Fatigue [Unknown]
  - Fall [Unknown]
  - Fall [Unknown]
  - Eye contusion [Unknown]
  - Eye oedema [Unknown]
  - Haematoma [Unknown]
  - Asthenia [Unknown]
  - Orthostatic hypotension [Unknown]
  - Pulse abnormal [Unknown]
  - Decreased appetite [Unknown]
  - Oedema mucosal [Unknown]
  - Dehydration [Unknown]
  - Feeling abnormal [Unknown]
  - Adverse event [Unknown]
  - Toxicity to various agents [Unknown]

NARRATIVE: CASE EVENT DATE: 20220101
